FAERS Safety Report 4645430-8 (Version None)
Quarter: 2005Q2

REPORT INFORMATION
  Report Type: 
  Country: None (occurrence: None)
  Receive Date: 20050331
  Receipt Date: 20050207
  Transmission Date: 20051028
  Serious: Yes (Hospitalization)
  Sender: FDA-Public Use
  Company Number: 05P-163-0289944-00

PATIENT
  Age: 44 Year
  Sex: Female

DRUGS (5)
  1. HUMIRA [Suspect]
     Indication: RHEUMATOID ARTHRITIS
     Dosage: 40 MG, 1 IN 1 WK, SUBCUTANEOUS
     Route: 058
     Dates: start: 20030101, end: 20050101
  2. TOPIRAMATE [Concomitant]
  3. EPOGEN [Concomitant]
  4. TORSEMIDE [Concomitant]
  5. OXYCODONE HCL [Concomitant]

REACTIONS (2)
  - PNEUMONIA [None]
  - WHITE BLOOD CELL COUNT INCREASED [None]
